FAERS Safety Report 7161313-6 (Version None)
Quarter: 2010Q4

REPORT INFORMATION
  Report Type: 
  Country: None (occurrence: None)
  Receive Date: 20101123
  Receipt Date: 20100803
  Transmission Date: 20110411
  Serious: Yes (Hospitalization)
  Sender: FDA-Public Use
  Company Number: 016530

PATIENT
  Sex: Female
  Weight: 137 kg

DRUGS (9)
  1. CIMZIA [Suspect]
     Indication: CROHN'S DISEASE
     Dosage: (400 MG 1X/4 WEEKS SUBCUTANEOUS)
     Route: 058
     Dates: start: 20090701, end: 20100701
  2. MERCAPTOPURINE [Concomitant]
  3. PAXIL [Concomitant]
  4. AMITRIPTYLINE [Concomitant]
  5. HYOSCYAMINE [Concomitant]
  6. DIPHENOXYLATE HCL AND ATROPINE SULFATE [Concomitant]
  7. TRAMADOL [Concomitant]
  8. PREDNISONE [Concomitant]
  9. ZOFRAN [Concomitant]

REACTIONS (2)
  - COLITIS [None]
  - DEHYDRATION [None]
